FAERS Safety Report 6050310-X (Version None)
Quarter: 2009Q1

REPORT INFORMATION
  Report Type: 
  Country: None (occurrence: None)
  Receive Date: 20090126
  Receipt Date: 20090113
  Transmission Date: 20090719
  Serious: Yes (Other)
  Sender: FDA-Public Use
  Company Number: FR-ROCHE-599223

PATIENT
  Age: 84 Year
  Sex: Female

DRUGS (7)
  1. BONIVA [Suspect]
     Indication: OSTEOPOROSIS
     Dosage: 1 TAB/MONTH
     Route: 048
     Dates: start: 20080814, end: 20081119
  2. DILTIAZEM HCL [Concomitant]
  3. LIPANTHYL [Concomitant]
  4. CHONDROSULF [Concomitant]
     Dosage: DOSE REGIMEN : 1 DOSE
  5. TRIACT [Concomitant]
     Dosage: DOSE REGIMEN : 1 DOSE
     Dates: start: 20050101
  6. PRAZEPAM [Concomitant]
     Indication: INSOMNIA
     Dosage: 1 DOSE PER DAY
     Dates: start: 20070101
  7. TANGANIL [Concomitant]
     Indication: VERTIGO
     Dosage: DOSE REGIMEN : 1 DOSE
     Dates: start: 20070101

REACTIONS (1)
  - PHLEBITIS SUPERFICIAL [None]
